FAERS Safety Report 10668658 (Version 1)
Quarter: 2014Q4

REPORT INFORMATION
  Report Type: Spontaneous
  Country: US (occurrence: None)
  Receive Date: 20141217
  Receipt Date: 20141217
  Transmission Date: 20150529
  Serious: No
  Sender: FDA-Public Use
  Company Number: 2014CT000065

PATIENT
  Age: 58 Year
  Sex: Female
  Weight: 147.42 kg

DRUGS (7)
  1. KORLYM [Suspect]
     Active Substance: MIFEPRISTONE
     Indication: PITUITARY-DEPENDENT CUSHING^S SYNDROME
     Route: 048
     Dates: start: 201409
  2. KORLYM [Suspect]
     Active Substance: MIFEPRISTONE
     Indication: HYPERADRENALISM
     Route: 048
     Dates: start: 201409
  3. HYDROCHLOROTHIAZIDE. [Concomitant]
     Active Substance: HYDROCHLOROTHIAZIDE
  4. FOSAMAX [Concomitant]
     Active Substance: ALENDRONATE SODIUM
  5. METFORMIN [Concomitant]
     Active Substance: METFORMIN HYDROCHLORIDE
  6. LOPRESSOR [Concomitant]
     Active Substance: METOPROLOL TARTRATE
  7. LISINOPRIL. [Concomitant]
     Active Substance: LISINOPRIL

REACTIONS (4)
  - Oedema peripheral [None]
  - Rash [None]
  - Vulvovaginal pruritus [None]
  - Vulvovaginal burning sensation [None]

NARRATIVE: CASE EVENT DATE: 20140514
